FAERS Safety Report 7994135-4 (Version None)
Quarter: 2011Q4

REPORT INFORMATION
  Report Type: 
  Country: None (occurrence: None)
  Receive Date: 20111220
  Receipt Date: 20111207
  Transmission Date: 20120403
  Serious: Yes (Hospitalization, Other)
  Sender: FDA-Public Use
  Company Number: US-ELI_LILLY_AND_COMPANY-US201112002500

PATIENT
  Sex: Female

DRUGS (6)
  1. HUMULIN R [Concomitant]
     Indication: DIABETES MELLITUS
     Dosage: UNK, PRN
     Route: 058
  2. LANTUS [Concomitant]
     Dosage: 35 U, UNKNOWN
  3. GLYBURIDE [Concomitant]
     Dosage: UNK, UNKNOWN
  4. BYETTA [Suspect]
     Dosage: UNK, UNKNOWN
     Route: 058
  5. JANUVIA [Concomitant]
     Dosage: 100 MG, UNKNOWN
  6. LANTUS [Concomitant]
     Dosage: 27 U, UNKNOWN

REACTIONS (3)
  - HEPATIC ENZYME INCREASED [None]
  - OFF LABEL USE [None]
  - DRUG INEFFECTIVE [None]
